FAERS Safety Report 20921865 (Version 2)
Quarter: 2022Q4

REPORT INFORMATION
  Report Type: Report from Study
  Country: JP (occurrence: JP)
  Receive Date: 20220607
  Receipt Date: 20221005
  Transmission Date: 20230113
  Serious: Yes (Hospitalization, Other)
  Sender: FDA-Public Use
  Company Number: JP-ONO-2022JP014879

PATIENT
  Age: 79 Year
  Sex: Female
  Weight: 49 kg

DRUGS (23)
  1. OPDIVO [Suspect]
     Active Substance: NIVOLUMAB
     Indication: Gastric cancer
     Route: 041
     Dates: end: 20210819
  2. ANAMORELIN HYDROCHLORIDE [Suspect]
     Active Substance: ANAMORELIN HYDROCHLORIDE
     Indication: Cachexia
     Route: 048
     Dates: start: 20210624, end: 20211201
  3. MAGNESIUM OXIDE [Concomitant]
     Active Substance: MAGNESIUM OXIDE
     Indication: Product used for unknown indication
     Dosage: 990 MG, EVERYDAY
     Route: 048
     Dates: end: 20211210
  4. LOXOPROFEN [Concomitant]
     Active Substance: LOXOPROFEN
     Indication: Product used for unknown indication
     Dosage: 180 MG, EVERYDAY
     Route: 048
     Dates: end: 20211210
  5. GLIMEPIRIDE [Concomitant]
     Active Substance: GLIMEPIRIDE
     Indication: Product used for unknown indication
     Dosage: 0.5 MG, EVERYDAY
     Route: 048
     Dates: end: 20210901
  6. CILNIDIPINE [Concomitant]
     Active Substance: CILNIDIPINE
     Indication: Product used for unknown indication
     Dosage: 5 MG, EVERYDAY
     Route: 048
     Dates: end: 20211210
  7. VONOPRAZAN FUMARATE [Concomitant]
     Active Substance: VONOPRAZAN FUMARATE
     Indication: Prophylaxis
     Dosage: 10 MG, EVERYDAY
     Route: 048
     Dates: end: 20211210
  8. IMIDAPRIL HYDROCHLORIDE [Concomitant]
     Active Substance: IMIDAPRIL HYDROCHLORIDE
     Indication: Product used for unknown indication
     Dosage: 5 MG, EVERYDAY
     Route: 048
     Dates: end: 20211210
  9. FERROUS SULFATE [Concomitant]
     Active Substance: FERROUS SULFATE
     Dosage: 105 MG, EVERYDAY
     Route: 048
     Dates: end: 20211210
  10. FERROUS SULFATE [Concomitant]
     Active Substance: FERROUS SULFATE
     Indication: Product used for unknown indication
  11. PREGABALIN [Concomitant]
     Active Substance: PREGABALIN
     Indication: Product used for unknown indication
     Dosage: 25 MG, EVERYDAY
     Route: 048
     Dates: end: 20210818
  12. PREGABALIN [Concomitant]
     Active Substance: PREGABALIN
     Dosage: 225 MG, EVERYDAY
     Route: 048
     Dates: end: 20210818
  13. PREGABALIN [Concomitant]
     Active Substance: PREGABALIN
     Dosage: 100 MG, EVERYDAY
     Route: 048
     Dates: start: 20210819, end: 20211210
  14. SYMPROIC [Concomitant]
     Active Substance: NALDEMEDINE
     Indication: Product used for unknown indication
     Dosage: 0.2 MG, EVERYDAY
     Route: 048
     Dates: end: 20211210
  15. LIMAPROST [Concomitant]
     Active Substance: LIMAPROST
     Indication: Product used for unknown indication
     Dosage: 15 ?G, EVERYDAY
     Route: 048
     Dates: end: 20211210
  16. HYDROMORPHONE HYDROCHLORIDE [Concomitant]
     Active Substance: HYDROMORPHONE HYDROCHLORIDE
     Indication: Product used for unknown indication
     Dosage: 2 MG, EVERYDAY
     Route: 048
     Dates: end: 20211210
  17. RISEDRONATE SODIUM [Concomitant]
     Active Substance: RISEDRONATE SODIUM
     Indication: Product used for unknown indication
     Dosage: 75 MG/MONTH
     Route: 048
     Dates: end: 20211210
  18. HEPARINOID [Concomitant]
     Indication: Product used for unknown indication
     Dosage: APPROPRIATE DOSE (G), EVERYDAY
     Route: 061
     Dates: start: 20210916, end: 20211201
  19. DIFLUCORTOLONE VALERATE [Concomitant]
     Active Substance: DIFLUCORTOLONE VALERATE
     Indication: Product used for unknown indication
     Dosage: APPROPRIATE DOSE (ML), EVERYDAY
     Route: 061
     Dates: start: 20210916, end: 20211201
  20. LOXOPROFEN SODIUM [Concomitant]
     Active Substance: LOXOPROFEN SODIUM
     Indication: Product used for unknown indication
     Dosage: 200 MG, EVERYDAY
     Route: 062
     Dates: end: 20211201
  21. MEPERIDINE HYDROCHLORIDE [Concomitant]
     Active Substance: MEPERIDINE HYDROCHLORIDE
     Indication: Product used for unknown indication
     Dosage: 35 MG, EVERYDAY
     Route: 065
     Dates: start: 20211027, end: 20211027
  22. DONEPEZIL HYDROCHLORIDE OD KUNIHIRO [Concomitant]
     Indication: Product used for unknown indication
     Route: 048
     Dates: end: 20211210
  23. OMEPRAZOLE [Concomitant]
     Active Substance: OMEPRAZOLE
     Indication: Product used for unknown indication
     Route: 065
     Dates: start: 20211027, end: 20211027

REACTIONS (1)
  - Cardiac failure high output [Recovering/Resolving]

NARRATIVE: CASE EVENT DATE: 20211125
